FAERS Safety Report 9809612 (Version 3)
Quarter: 2015Q4

REPORT INFORMATION
  Report Type: Spontaneous
  Country: US (occurrence: US)
  Receive Date: 20140110
  Receipt Date: 20151228
  Transmission Date: 20160305
  Serious: Yes (Other)
  Sender: FDA-Public Use
  Company Number: US-SANOFI-AVENTIS-2012SA040248

PATIENT
  Age: 52 Year
  Sex: Male

DRUGS (4)
  1. PLAVIX [Suspect]
     Active Substance: CLOPIDOGREL BISULFATE
     Indication: HAEMORRHAGE
     Route: 065
     Dates: start: 1997, end: 201106
  2. PLAVIX [Suspect]
     Active Substance: CLOPIDOGREL BISULFATE
     Indication: THROMBOSIS
     Route: 065
     Dates: start: 1997, end: 201106
  3. ASPIRIN. [Suspect]
     Active Substance: ASPIRIN
  4. PLAVIX [Suspect]
     Active Substance: CLOPIDOGREL BISULFATE
     Indication: PROPHYLAXIS
     Route: 065
     Dates: start: 1997, end: 201106

REACTIONS (1)
  - Gastrointestinal haemorrhage [Not Recovered/Not Resolved]

NARRATIVE: CASE EVENT DATE: 20110601
